FAERS Safety Report 10884837 (Version 1)
Quarter: 2015Q1

REPORT INFORMATION
  Report Type: Spontaneous
  Country: US (occurrence: None)
  Receive Date: 20150227
  Receipt Date: 20150227
  Transmission Date: 20150721
  Serious: Yes (Hospitalization)
  Sender: FDA-Public Use
  Company Number: None

PATIENT
  Age: 22 Year
  Sex: Female
  Weight: 79.2 kg

DRUGS (1)
  1. LIPOSOMAL DOXORUBICIN [Suspect]
     Active Substance: DOXORUBICIN HYDROCHLORIDE
     Dates: end: 20150126

REACTIONS (4)
  - Haemorrhoids [None]
  - Constipation [None]
  - Rectal haemorrhage [None]
  - Abdominal pain [None]

NARRATIVE: CASE EVENT DATE: 20140209
